FAERS Safety Report 5624371-3 (Version None)
Quarter: 2008Q1

REPORT INFORMATION
  Report Type: 
  Country: None (occurrence: None)
  Receive Date: 20080213
  Receipt Date: 20080206
  Transmission Date: 20080703
  Serious: Yes (Other)
  Sender: FDA-Public Use
  Company Number: US-ASTRAZENECA-2007UW12846

PATIENT
  Age: 16663 Day
  Sex: Female
  Weight: 145.9 kg

DRUGS (5)
  1. SEROQUEL [Suspect]
     Indication: BIPOLAR DISORDER
     Route: 048
     Dates: start: 20050501
  2. SEROQUEL [Suspect]
     Indication: DEPRESSION
     Route: 048
     Dates: start: 20050501
  3. RISPERDAL [Concomitant]
     Dates: start: 20020501, end: 20041001
  4. PROZAC [Concomitant]
     Dosage: 10 MG, 20 MG
     Dates: start: 20050422, end: 20070510
  5. LORAZEPAM [Concomitant]
     Dosage: 0.5 - 1 MG
     Dates: start: 20050316, end: 20070830

REACTIONS (5)
  - ARTHRALGIA [None]
  - CARDIOMEGALY [None]
  - EAR OPERATION [None]
  - HYSTERECTOMY [None]
  - TYPE 2 DIABETES MELLITUS [None]
